FAERS Safety Report 5487904-6 (Version None)
Quarter: 2007Q4

REPORT INFORMATION
  Report Type: 
  Country: None (occurrence: None)
  Receive Date: 20071017
  Receipt Date: 20071009
  Transmission Date: 20080405
  Serious: Yes (Other)
  Sender: FDA-Public Use
  Company Number: CA-ELI_LILLY_AND_COMPANY-CA200710002706

PATIENT
  Age: 63 Year
  Sex: Female

DRUGS (4)
  1. FORTEO [Suspect]
     Indication: OSTEOPOROSIS
     Dosage: 20 UG, QOD
     Route: 058
     Dates: start: 20060604
  2. CALCIUM [Concomitant]
     Dosage: UNK, UNK
  3. VITAMIN D [Concomitant]
     Dosage: UNK, UNK
  4. LIPITOR [Concomitant]
     Dosage: UNK, UNK

REACTIONS (2)
  - BREAST CANCER [None]
  - COCHLEA IMPLANT [None]
